FAERS Safety Report 4690235-5 (Version None)
Quarter: 2005Q2

REPORT INFORMATION
  Report Type: 
  Country: None (occurrence: None)
  Receive Date: 20050615
  Receipt Date: 20050518
  Transmission Date: 20051028
  Serious: Yes (Other)
  Sender: FDA-Public Use
  Company Number: JP-ROCHE-405363

PATIENT
  Age: 69 Year
  Sex: Female

DRUGS (5)
  1. ROCEPHIN [Suspect]
     Indication: LARYNGOPHARYNGITIS
     Route: 041
     Dates: start: 20050516, end: 20050516
  2. THIAMINE HCL [Concomitant]
     Dosage: TRADE NAME UNKNOWN.
     Route: 041
     Dates: start: 20050516, end: 20050516
  3. VITAMIN B2 [Concomitant]
     Route: 041
     Dates: start: 20050516, end: 20050516
  4. PYRIDOXAL PHOSPHATE [Concomitant]
     Dosage: TRADE NAME: HIMITAN
     Route: 041
     Dates: start: 20050516, end: 20050516
  5. ASCORBIC ACID [Concomitant]
     Route: 041
     Dates: start: 20050516, end: 20050516

REACTIONS (2)
  - ANAPHYLACTOID REACTION [None]
  - ERYTHEMA MULTIFORME [None]
